FAERS Safety Report 16957215 (Version 3)
Quarter: 2019Q4

REPORT INFORMATION
  Report Type: Spontaneous
  Country: US (occurrence: US)
  Receive Date: 20191024
  Receipt Date: 20191126
  Transmission Date: 20200122
  Serious: Yes (Hospitalization)
  Sender: FDA-Public Use
  Company Number: US-ELI_LILLY_AND_COMPANY-US201910008461

PATIENT
  Age: 14 Year
  Sex: Female

DRUGS (2)
  1. INSULIN LISPRO [Suspect]
     Active Substance: INSULIN LISPRO
     Dosage: UNK, UNKNOWN
     Route: 058
  2. INSULIN LISPRO [Suspect]
     Active Substance: INSULIN LISPRO
     Indication: TYPE 1 DIABETES MELLITUS
     Dosage: UNK, UNKNOWN
     Route: 058
     Dates: start: 201908

REACTIONS (8)
  - Blood glucose increased [Unknown]
  - Blood glucose abnormal [Recovered/Resolved]
  - Urticaria [Recovered/Resolved]
  - Vomiting [Unknown]
  - Blood glucose increased [Unknown]
  - Diabetic ketoacidosis [Unknown]
  - Blood ketone body present [Unknown]
  - Dehydration [Unknown]

NARRATIVE: CASE EVENT DATE: 20190925
